FAERS Safety Report 4339371-3 (Version None)
Quarter: 2004Q2

REPORT INFORMATION
  Report Type: 
  Country: None (occurrence: None)
  Receive Date: 20040412
  Receipt Date: 20040402
  Transmission Date: 20050107
  Serious: Yes (Hospitalization)
  Sender: FDA-Public Use
  Company Number: 04P-163-0256209-00

PATIENT
  Age: 59 Year
  Sex: Female
  Weight: 97.977 kg

DRUGS (10)
  1. HUMIRA [Suspect]
     Indication: RHEUMATOID ARTHRITIS
     Dosage: 40 MG, 1 IN 2 WK, SUBCUTANEOUS
     Route: 058
     Dates: start: 20040101, end: 20040301
  2. SUCRALFATE [Concomitant]
  3. NABUMETONE [Concomitant]
  4. TIZANIDINE HYDROCHLORIDE [Concomitant]
  5. ALPRAZOLAM [Concomitant]
  6. METHOTREXATE [Concomitant]
  7. FOLIC ACID [Concomitant]
  8. CITALOPRAM HYDROBROMIDE [Concomitant]
  9. GABAPENTIN [Concomitant]
  10. IMIPRAMINE [Concomitant]

REACTIONS (1)
  - DIABETIC HYPEROSMOLAR COMA [None]
